FAERS Safety Report 5589393-X (Version None)
Quarter: 2008Q2

REPORT INFORMATION
  Report Type: 
  Country: None (occurrence: None)
  Receive Date: 20080110
  Receipt Date: 20080110
  Transmission Date: 20081010
  Serious: Yes (Other)
  Sender: FDA-Public Use
  Company Number: None

PATIENT
  Age: 33 Year
  Sex: Female
  Weight: 73.4827 kg

DRUGS (2)
  1. UNFRACTIONATED HEPARIN (UFH) [Suspect]
     Indication: DEEP VEIN THROMBOSIS
     Dosage: 15 000 UNITS Q12 SUBQ
     Route: 058
     Dates: start: 20071018, end: 20071119
  2. LOVENOX [Suspect]

REACTIONS (5)
  - DRUG EXPOSURE DURING PREGNANCY [None]
  - INJECTION SITE ERYTHEMA [None]
  - INJECTION SITE INFLAMMATION [None]
  - INJECTION SITE PRURITUS [None]
  - RASH [None]
